FAERS Safety Report 19902342 (Version 1)
Quarter: 2021Q3

REPORT INFORMATION
  Report Type: Spontaneous
  Country: US (occurrence: US)
  Receive Date: 20210930
  Receipt Date: 20210930
  Transmission Date: 20211014
  Serious: No
  Sender: FDA-Public Use
  Company Number: US-SA-2021SA315901

PATIENT
  Age: 8 Year
  Sex: Female
  Weight: 22.68 kg

DRUGS (7)
  1. PREDNISOLONE. [Concomitant]
     Active Substance: PREDNISOLONE
     Indication: DERMATITIS ATOPIC
  2. HYDROCORTISONE. [Concomitant]
     Active Substance: HYDROCORTISONE
  3. DUPIXENT [Suspect]
     Active Substance: DUPILUMAB
     Indication: DERMATITIS ATOPIC
     Dosage: 300 MG, Q4W
     Route: 058
     Dates: start: 202108
  4. TACROLIMUS. [Concomitant]
     Active Substance: TACROLIMUS
     Indication: DERMATITIS ATOPIC
  5. PROPIONATE [Concomitant]
  6. CLOTRIMAZOLE. [Concomitant]
     Active Substance: CLOTRIMAZOLE
  7. FLUTICASONE. [Concomitant]
     Active Substance: FLUTICASONE

REACTIONS (2)
  - Dermatitis atopic [Unknown]
  - Therapeutic response decreased [Unknown]

NARRATIVE: CASE EVENT DATE: 2021
